FAERS Safety Report 9436395 (Version 1)
Quarter: 2013Q3

REPORT INFORMATION
  Report Type: Spontaneous
  Country: US (occurrence: US)
  Receive Date: 20130802
  Receipt Date: 20130802
  Transmission Date: 20140515
  Serious: No
  Sender: FDA-Public Use
  Company Number: US-009507513-1307USA002229

PATIENT
  Sex: Male
  Weight: 95.24 kg

DRUGS (4)
  1. VICTRELIS [Suspect]
     Dosage: 4 CAPSULES (800) MG BY MOUTH THREE TIMES A DAY (EVERY 7-9 HOURS) WITH FOOD
     Route: 048
  2. PEGASYS [Suspect]
     Dosage: 180 MICROGRAM/M
     Route: 058
  3. RIBAPAK [Suspect]
     Dosage: PAK 1200 / DAY
  4. ERGOCALCIFEROL [Concomitant]

REACTIONS (1)
  - Fatigue [Unknown]
